FAERS Safety Report 6164451-X (Version None)
Quarter: 2009Q2

REPORT INFORMATION
  Report Type: 
  Country: None (occurrence: None)
  Receive Date: 20090421
  Receipt Date: 20090414
  Transmission Date: 20091009
  Serious: No
  Sender: FDA-Public Use
  Company Number: 231016

PATIENT
  Age: 9 Month
  Sex: Male
  Weight: 2.4404 kg

DRUGS (3)
  1. PRECEDEX [Suspect]
     Indication: SEDATIVE THERAPY
     Dosage: .2 MCG/KG/HR, CONTINUOUS, INTRAVENOUS, .3 MCG/KG/HR (CONTINUIOUS), INTRAVENOUS
     Route: 042
     Dates: start: 20090326, end: 20090326
  2. PRECEDEX [Suspect]
     Indication: SEDATIVE THERAPY
     Dosage: .2 MCG/KG/HR, CONTINUOUS, INTRAVENOUS, .3 MCG/KG/HR (CONTINUIOUS), INTRAVENOUS
     Route: 042
     Dates: start: 20090326, end: 20090326
  3. SOLU-MEDROL [Concomitant]

REACTIONS (4)
  - BRONCHOSPASM [None]
  - OFF LABEL USE [None]
  - RASH [None]
  - URTICARIA [None]
